FAERS Safety Report 19948503 (Version 1)
Quarter: 2021Q4

REPORT INFORMATION
  Report Type: Spontaneous
  Country: US (occurrence: US)
  Receive Date: 20211013
  Receipt Date: 20211013
  Transmission Date: 20220303
  Serious: Yes (Other)
  Sender: FDA-Public Use
  Company Number: US-DRREDDYS-LIT/USA/21/0142520

PATIENT
  Age: 17 Year
  Sex: Female

DRUGS (2)
  1. MERCAPTOPURINE [Suspect]
     Active Substance: MERCAPTOPURINE
     Indication: Varicella zoster virus infection
  2. METHOTREXATE [Suspect]
     Active Substance: METHOTREXATE
     Indication: Varicella zoster virus infection

REACTIONS (2)
  - Infection reactivation [Unknown]
  - Herpes zoster disseminated [Unknown]
